FAERS Safety Report 4541907-4 (Version None)
Quarter: 2004Q4

REPORT INFORMATION
  Report Type: 
  Country: None (occurrence: None)
  Receive Date: 20041227
  Receipt Date: 20041012
  Transmission Date: 20050328
  Serious: Yes (Life-Threatening, Hospitalization)
  Sender: FDA-Public Use
  Company Number: S04-AUS-08252-01

PATIENT
  Age: 27 Year
  Sex: Female

DRUGS (4)
  1. LEXAPRO [Suspect]
     Indication: DEPRESSION
     Dosage: 10 MG QD PO
     Route: 048
     Dates: start: 20040801, end: 20041010
  2. LEXAPRO [Suspect]
     Indication: DEPRESSION
     Dosage: 10 MG QD PO
     Route: 048
     Dates: start: 20041014, end: 20041101
  3. PAMOL (PARACETAMOL) [Concomitant]
  4. CONTRACEPTIVE NOS [Concomitant]

REACTIONS (4)
  - OEDEMA MOUTH [None]
  - SYSTEMIC LUPUS ERYTHEMATOSUS [None]
  - THROAT TIGHTNESS [None]
  - URTICARIA [None]
